FAERS Safety Report 20228894 (Version 2)
Quarter: 2022Q1

REPORT INFORMATION
  Report Type: Spontaneous
  Country: TW (occurrence: TW)
  Receive Date: 20211225
  Receipt Date: 20220122
  Transmission Date: 20220423
  Serious: Yes (Hospitalization, Other)
  Sender: FDA-Public Use
  Company Number: TW-SA-SAC20211223000939

PATIENT
  Age: 14 Year
  Sex: Male

DRUGS (3)
  1. MYOZYME [Suspect]
     Active Substance: ALGLUCOSIDASE ALFA
     Dosage: 18 VIALS
     Route: 042
     Dates: start: 20211203, end: 20211203
  2. DIPHENHYDRAMINE [Concomitant]
     Active Substance: DIPHENHYDRAMINE
     Dosage: 40 MG
  3. METHYLPREDNISOLONE [Concomitant]
     Active Substance: METHYLPREDNISOLONE

REACTIONS (1)
  - Upper gastrointestinal haemorrhage [Unknown]
